FAERS Safety Report 7064246-9 (Version None)
Quarter: 2010Q4

REPORT INFORMATION
  Report Type: 
  Country: None (occurrence: None)
  Receive Date: 20101027
  Receipt Date: 20101014
  Transmission Date: 20110411
  Serious: Yes (Hospitalization, Disabling, Other)
  Sender: FDA-Public Use
  Company Number: ES-ELI_LILLY_AND_COMPANY-ES201010003185

PATIENT
  Sex: Female

DRUGS (6)
  1. FORTEO [Suspect]
     Indication: OSTEOPOROSIS
     Dosage: 20 UG, DAILY (1/D)
     Route: 058
     Dates: start: 20090201, end: 20100712
  2. CALCIO [Concomitant]
     Indication: RHEUMATOID ARTHRITIS
     Dosage: UNK, DAILY (1/D)
     Route: 048
  3. ZAMENE [Concomitant]
     Indication: RHEUMATOID ARTHRITIS
     Dosage: 6 MG, DAILY (1/D)
     Route: 048
  4. ANAFRANIL [Concomitant]
     Dosage: 10 MG, 2 TABLETS DAILY
     Route: 048
  5. ENALAPRIL MALEATE [Concomitant]
     Indication: HYPERTENSION
     Dosage: 20 MG, HALF A TABLET DAILY
     Route: 048
  6. IDAPTAN [Concomitant]
     Indication: MACULAR DEGENERATION
     Dosage: 20 MG, 2/D
     Route: 048

REACTIONS (5)
  - CARDIAC DISORDER [None]
  - CIRCULATORY COLLAPSE [None]
  - GASTROENTERITIS [None]
  - MESENTERIC VASCULAR INSUFFICIENCY [None]
  - RENAL DISORDER [None]
